FAERS Safety Report 11695399 (Version 1)
Quarter: 2015Q4

REPORT INFORMATION
  Report Type: Spontaneous
  Country: US (occurrence: US)
  Receive Date: 20151104
  Receipt Date: 20151104
  Transmission Date: 20160304
  Serious: Yes (Other)
  Sender: FDA-Public Use
  Company Number: PHHY2015US138601

PATIENT
  Age: 30 Year
  Sex: Male

DRUGS (4)
  1. METOPROLOL [Suspect]
     Active Substance: METOPROLOL
     Indication: BLOOD PRESSURE INCREASED
     Route: 048
  2. CLONIDINE HYDROCHLORIDE. [Concomitant]
     Active Substance: CLONIDINE HYDROCHLORIDE
     Indication: BLOOD PRESSURE INCREASED
     Route: 048
  3. ESMOLOL [Suspect]
     Active Substance: ESMOLOL HYDROCHLORIDE
     Indication: BLOOD PRESSURE INCREASED
     Dosage: 300 UG/KG/MIN
     Route: 042
  4. LABETALOL [Suspect]
     Active Substance: LABETALOL\LABETALOL HYDROCHLORIDE
     Indication: BLOOD PRESSURE INCREASED
     Route: 048

REACTIONS (7)
  - Acute kidney injury [None]
  - Intestinal ischaemia [None]
  - International normalised ratio increased [None]
  - Haemodynamic instability [None]
  - Toxicity to various agents [None]
  - Hypoglycaemia [None]
  - Cardiomyopathy [Unknown]
